FAERS Safety Report 6794927-3 (Version None)
Quarter: 2010Q2

REPORT INFORMATION
  Report Type: 
  Country: None (occurrence: None)
  Receive Date: 20100625
  Receipt Date: 20100618
  Transmission Date: 20101027
  Serious: Yes (Other)
  Sender: FDA-Public Use
  Company Number: US-TEVA-238436USA

PATIENT
  Sex: Female

DRUGS (1)
  1. CLARAVIS [Suspect]
     Dosage: 40MG IN AM; 20MG IN PM
     Route: 048
     Dates: start: 20100322, end: 20100601

REACTIONS (1)
  - UNINTENDED PREGNANCY [None]
